FAERS Safety Report 23057644 (Version 2)
Quarter: 2023Q4

REPORT INFORMATION
  Report Type: Spontaneous
  Country: US (occurrence: US)
  Receive Date: 20231012
  Receipt Date: 20231024
  Transmission Date: 20240109
  Serious: No
  Sender: FDA-Public Use
  Company Number: US-009507513-2310USA002590

PATIENT
  Age: 77 Year
  Sex: Female

DRUGS (2)
  1. BELSOMRA [Suspect]
     Active Substance: SUVOREXANT
     Indication: Insomnia
     Dosage: 10 MG TABLET, TAKE 1 TABLET BY MOUTH AT BEDTIME AS NEEDED, QUANTITY 30
     Route: 048
     Dates: start: 20231004, end: 20231005
  2. LOSARTAN [Concomitant]
     Active Substance: LOSARTAN

REACTIONS (5)
  - Drug ineffective [Unknown]
  - Feeling abnormal [Recovered/Resolved]
  - Pain in extremity [Recovered/Resolved]
  - Malaise [Recovered/Resolved]
  - Nightmare [Recovered/Resolved]

NARRATIVE: CASE EVENT DATE: 20231004
